FAERS Safety Report 13518111 (Version 3)
Quarter: 2017Q2

REPORT INFORMATION
  Report Type: Spontaneous
  Country: US (occurrence: US)
  Receive Date: 20170505
  Receipt Date: 20170524
  Transmission Date: 20170830
  Serious: Yes (Other)
  Sender: FDA-Public Use
  Company Number: US-GLAXOSMITHKLINE-US2017064813

PATIENT
  Age: 74 Year
  Sex: Female

DRUGS (2)
  1. VENTOLIN HFA [Suspect]
     Active Substance: ALBUTEROL SULFATE
     Indication: ASTHMA
     Dosage: 2 PUFF(S), QID AS NEEDED
     Route: 055
     Dates: start: 2015
  2. VENTOLIN HFA [Suspect]
     Active Substance: ALBUTEROL SULFATE
     Indication: CHRONIC OBSTRUCTIVE PULMONARY DISEASE

REACTIONS (18)
  - Head injury [Recovering/Resolving]
  - Dyspnoea [Recovering/Resolving]
  - Myalgia [Unknown]
  - Blood potassium decreased [Unknown]
  - Fall [Recovering/Resolving]
  - Dysphonia [Unknown]
  - Loss of consciousness [Unknown]
  - Tremor [Unknown]
  - Emergency care examination [Recovered/Resolved]
  - Vomiting [Unknown]
  - Headache [Unknown]
  - Muscle spasms [Unknown]
  - Dizziness [Recovering/Resolving]
  - Rhinorrhoea [Unknown]
  - Heart rate increased [Unknown]
  - Drug ineffective [Unknown]
  - Asthenia [Unknown]
  - Blood sodium decreased [Unknown]

NARRATIVE: CASE EVENT DATE: 20170408
